FAERS Safety Report 25529795 (Version 1)
Quarter: 2025Q3

REPORT INFORMATION
  Report Type: Report from Study
  Country: CA (occurrence: CA)
  Receive Date: 20250708
  Receipt Date: 20250708
  Transmission Date: 20251021
  Serious: Yes (Death, Other)
  Sender: TAKEDA
  Company Number: CA-TAKEDA-2025TUS061502

PATIENT
  Sex: Female

DRUGS (20)
  1. VEDOLIZUMAB [Suspect]
     Active Substance: VEDOLIZUMAB
     Indication: Colitis ulcerative
  2. VEDOLIZUMAB [Suspect]
     Active Substance: VEDOLIZUMAB
     Dosage: 300 MILLIGRAM, Q4WEEKS
     Dates: start: 20191217
  3. VEDOLIZUMAB [Suspect]
     Active Substance: VEDOLIZUMAB
     Indication: Colitis ulcerative
     Dosage: 108 MILLIGRAM, Q2WEEKS
     Dates: start: 20240209
  4. PREDNISONE [Concomitant]
     Active Substance: PREDNISONE
     Indication: Steroid dependence
     Dosage: UNK UNK, QD
  5. ALLOPURINOL [Concomitant]
     Active Substance: ALLOPURINOL
  6. MESALAMINE [Concomitant]
     Active Substance: MESALAMINE
  7. MAGNESIUM GLUCONATE [Concomitant]
     Active Substance: MAGNESIUM GLUCONATE
  8. ATORVASTATIN [Concomitant]
     Active Substance: ATORVASTATIN
  9. VITAMIN D [Concomitant]
     Active Substance: VITAMIN D NOS
  10. CALCIUM CARBONATE [Concomitant]
     Active Substance: CALCIUM CARBONATE
  11. CYCLOBENZAPRINE [Concomitant]
     Active Substance: CYCLOBENZAPRINE
  12. BISOPROLOL [Concomitant]
     Active Substance: BISOPROLOL
  13. FUROSEMIDE [Concomitant]
     Active Substance: FUROSEMIDE
  14. RANITIDINE [Concomitant]
     Active Substance: RANITIDINE
  15. RAMIPRIL [Concomitant]
     Active Substance: RAMIPRIL
  16. XARELTO [Concomitant]
     Active Substance: RIVAROXABAN
  17. CETIRIZINE [Concomitant]
     Active Substance: CETIRIZINE HYDROCHLORIDE
  18. LORAZEPAM [Concomitant]
     Active Substance: LORAZEPAM
  19. NOVORAPID [Concomitant]
     Active Substance: INSULIN ASPART
  20. BASAGLAR [Concomitant]
     Active Substance: INSULIN GLARGINE

REACTIONS (1)
  - Death [Fatal]
